FAERS Safety Report 18413379 (Version 1)
Quarter: 2020Q4

REPORT INFORMATION
  Report Type: Spontaneous
  Country: CH (occurrence: CH)
  Receive Date: 20201021
  Receipt Date: 20201021
  Transmission Date: 20210114
  Serious: Yes (Death)
  Sender: FDA-Public Use
  Company Number: CH-009507513-2010CHE003831

PATIENT
  Sex: Female
  Weight: 87.2 kg

DRUGS (1)
  1. NUVARING [Suspect]
     Active Substance: ETHINYL ESTRADIOL\ETONOGESTREL
     Dosage: EXACT THERAPY START DATE UNKNOWN.
     Route: 067
     Dates: start: 2017, end: 20200926

REACTIONS (2)
  - Ischaemic stroke [Fatal]
  - Pulmonary embolism [Fatal]

NARRATIVE: CASE EVENT DATE: 20200924
